FAERS Safety Report 9096064 (Version 1)
Quarter: 2013Q1

REPORT INFORMATION
  Report Type: Spontaneous
  Country: ES (occurrence: ES)
  Receive Date: 20130207
  Receipt Date: 20130207
  Transmission Date: 20140127
  Serious: Yes (Hospitalization, Other)
  Sender: FDA-Public Use
  Company Number: PHHY2013ES011447

PATIENT
  Age: 57 Year
  Sex: Female

DRUGS (1)
  1. TASIGNA [Suspect]
     Indication: CHRONIC MYELOID LEUKAEMIA
     Dosage: 400 MG, BID
     Route: 048
     Dates: start: 20121023, end: 20130117

REACTIONS (10)
  - Acute myocardial infarction [Recovered/Resolved]
  - Chest pain [Unknown]
  - Cold sweat [Unknown]
  - Necrosis of artery [Unknown]
  - Arterial occlusive disease [Recovered/Resolved]
  - Respiratory arrest [Unknown]
  - Hypertension [Unknown]
  - Depressed level of consciousness [Unknown]
  - Oedema peripheral [Unknown]
  - Pain in extremity [Recovering/Resolving]
